FAERS Safety Report 7436562-X (Version None)
Quarter: 2011Q2

REPORT INFORMATION
  Report Type: 
  Country: None (occurrence: None)
  Receive Date: 20110426
  Receipt Date: 20110419
  Transmission Date: 20111010
  Serious: No
  Sender: FDA-Public Use
  Company Number: US-BIOGENIDEC-2011BI014992

PATIENT
  Sex: Female

DRUGS (1)
  1. TYSABRI [Suspect]
     Indication: MULTIPLE SCLEROSIS
     Route: 042
     Dates: start: 20090105

REACTIONS (7)
  - ARTHRALGIA [None]
  - MUSCLE TIGHTNESS [None]
  - PAIN [None]
  - BACK PAIN [None]
  - FALL [None]
  - VISION BLURRED [None]
  - EYE INFLAMMATION [None]
